FAERS Safety Report 5016754-X (Version None)
Quarter: 2006Q2

REPORT INFORMATION
  Report Type: 
  Country: None (occurrence: None)
  Receive Date: 20060602
  Receipt Date: 20060530
  Transmission Date: 20061013
  Serious: Yes (Life-Threatening, Hospitalization, Disabling, Other)
  Sender: FDA-Public Use
  Company Number: US-MERCK-0605USA05151

PATIENT
  Sex: Female

DRUGS (2)
  1. FOSAMAX [Suspect]
     Route: 048
  2. COUMADIN [Concomitant]
     Route: 065

REACTIONS (1)
  - GASTROINTESTINAL HAEMORRHAGE [None]
